FAERS Safety Report 9798665 (Version 1)
Quarter: 2014Q1

REPORT INFORMATION
  Report Type: Spontaneous
  Country: US (occurrence: US)
  Receive Date: 20140106
  Receipt Date: 20140106
  Transmission Date: 20141002
  Serious: No
  Sender: FDA-Public Use
  Company Number: US-GILEAD-2010-0029697

PATIENT
  Age: 76 Year
  Sex: Male

DRUGS (15)
  1. LETAIRIS [Suspect]
     Indication: PULMONARY ARTERIAL HYPERTENSION
     Route: 048
     Dates: start: 20100406
  2. SILDENAFIL CITRATE [Concomitant]
  3. ALLOPURINOL [Concomitant]
  4. FINASTERIDE [Concomitant]
  5. FOLIC ACID [Concomitant]
  6. TERAZOSIN HCL [Concomitant]
  7. MELATONIN [Concomitant]
  8. RANITIDINE [Concomitant]
  9. HYDROCODONE W/APAP [Concomitant]
  10. PROPOXYPHENE HCL [Concomitant]
  11. OMEGA-3 [Concomitant]
  12. FUROSEMIDE [Concomitant]
  13. METOPROLOL SUCCINATE [Concomitant]
  14. TESTOSTERONE [Concomitant]
  15. METOLAZONE [Concomitant]

REACTIONS (1)
  - Oedema [Recovered/Resolved]
